FAERS Safety Report 25219853 (Version 1)
Quarter: 2025Q2

REPORT INFORMATION
  Report Type: Spontaneous
  Country: CA (occurrence: CA)
  Receive Date: 20250421
  Receipt Date: 20250421
  Transmission Date: 20250716
  Serious: Yes (Other)
  Sender: PFIZER
  Company Number: CA-PFIZER INC-202500082253

PATIENT
  Age: 79 Year
  Sex: Female
  Weight: 77 kg

DRUGS (16)
  1. CALCIUM CHLORIDE [Suspect]
     Active Substance: CALCIUM CHLORIDE
     Route: 042
  2. ALBUREX [Suspect]
     Active Substance: ALBUMIN HUMAN
     Route: 042
  3. ALBUREX [Suspect]
     Active Substance: ALBUMIN HUMAN
     Route: 042
  4. ALBUREX [Suspect]
     Active Substance: ALBUMIN HUMAN
     Route: 065
  5. MAGNESIUM [Suspect]
     Active Substance: MAGNESIUM
     Route: 042
  6. CEFAZOLIN [Concomitant]
     Active Substance: CEFAZOLIN
  7. EPHEDRINE [Concomitant]
     Active Substance: EPHEDRINE
  8. METRONIDAZOLE [Concomitant]
     Active Substance: METRONIDAZOLE
  9. PHENYLEPHRINE [Concomitant]
     Active Substance: PHENYLEPHRINE
     Indication: Premedication
  10. PHENYLEPHRINE [Concomitant]
     Active Substance: PHENYLEPHRINE
  11. PROPOFOL [Concomitant]
     Active Substance: PROPOFOL
     Indication: Premedication
  12. PROPRANOLOL HYDROCHLORIDE [Concomitant]
     Active Substance: PROPRANOLOL HYDROCHLORIDE
     Indication: Premedication
     Route: 042
  13. REMIFENTANIL [Concomitant]
     Active Substance: REMIFENTANIL
  14. ROCURONIUM [Concomitant]
     Active Substance: ROCURONIUM BROMIDE
     Indication: Premedication
     Route: 042
  15. SUCCINYLCHOLINE [Concomitant]
     Active Substance: SUCCINYLCHOLINE
  16. TYLENOL [Concomitant]
     Active Substance: ACETAMINOPHEN
     Indication: Premedication

REACTIONS (9)
  - Administration site reaction [Recovered/Resolved]
  - Anaphylactic shock [Recovered/Resolved]
  - Circulatory collapse [Recovered/Resolved]
  - Hypersensitivity [Recovered/Resolved]
  - Hypotension [Recovered/Resolved]
  - Hypoxia [Recovered/Resolved]
  - Pulse absent [Recovered/Resolved]
  - Tachycardia [Recovered/Resolved]
  - Tryptase increased [Recovered/Resolved]
